FAERS Safety Report 18496605 (Version 1)
Quarter: 2020Q4

REPORT INFORMATION
  Report Type: Spontaneous
  Country: PL (occurrence: PL)
  Receive Date: 20201112
  Receipt Date: 20201112
  Transmission Date: 20210114
  Serious: Yes (Life-Threatening, Hospitalization, Other)
  Sender: FDA-Public Use
  Company Number: NVSC2020PL273888

PATIENT
  Age: 61 Year
  Sex: Female

DRUGS (3)
  1. KYMRIAH [Suspect]
     Active Substance: TISAGENLECLEUCEL
     Indication: DIFFUSE LARGE B-CELL LYMPHOMA
     Dosage: 0.7X108 CAR T-CELLS
     Route: 041
     Dates: start: 20200915
  2. METHOTREXATE. [Concomitant]
     Active Substance: METHOTREXATE
     Indication: PRODUCT USED FOR UNKNOWN INDICATION
     Dosage: UNK (FROM 03 NOV (YEAR UNSPECIFIED))
     Route: 065
  3. CYTARABINE. [Concomitant]
     Active Substance: CYTARABINE
     Indication: PRODUCT USED FOR UNKNOWN INDICATION
     Dosage: UNK (FROM 03 NOV (YEAR UNSPECIFIED))
     Route: 065

REACTIONS (19)
  - Back pain [Unknown]
  - Thrombocytopenia [Unknown]
  - Disturbance in social behaviour [Unknown]
  - Brain neoplasm [Unknown]
  - CSF white blood cell count increased [Unknown]
  - Balance disorder [Unknown]
  - Encephalitis [Unknown]
  - Immune effector cell-associated neurotoxicity syndrome [Recovering/Resolving]
  - CSF protein increased [Unknown]
  - Interleukin level increased [Unknown]
  - Agranulocytosis [Unknown]
  - Dysuria [Unknown]
  - Pain [Unknown]
  - CSF lactate increased [Unknown]
  - Neurological decompensation [Unknown]
  - Optic neuritis [Unknown]
  - Neutropenia [Unknown]
  - Tremor [Unknown]
  - Anaemia [Unknown]

NARRATIVE: CASE EVENT DATE: 20201006
